FAERS Safety Report 23045493 (Version 2)
Quarter: 2024Q1

REPORT INFORMATION
  Report Type: Spontaneous
  Country: US (occurrence: US)
  Receive Date: 20231009
  Receipt Date: 20240117
  Transmission Date: 20240410
  Serious: No
  Sender: FDA-Public Use
  Company Number: US-PFIZER INC-202300317439

PATIENT
  Age: 14 Year
  Sex: Female
  Weight: 54.43 kg

DRUGS (1)
  1. GENOTROPIN [Suspect]
     Active Substance: SOMATROPIN
     Indication: Growth failure
     Dosage: 1.2 MG (AT THE HIGHEST AND THE DOSES VARIED, BUY INJECTION EVERY NIGHT)

REACTIONS (2)
  - Nausea [Unknown]
  - Headache [Unknown]
